FAERS Safety Report 5016039-1 (Version None)
Quarter: 2006Q2

REPORT INFORMATION
  Report Type: 
  Country: None (occurrence: None)
  Receive Date: 20060531
  Receipt Date: 20060531
  Transmission Date: 20061013
  Serious: Yes (Hospitalization)
  Sender: FDA-Public Use
  Company Number: None

PATIENT

DRUGS (1)
  1. FLEETS PHOS SODIUM [Suspect]
     Indication: COLONOSCOPY
     Dosage: TWO BOTTLES ONCE PO
     Route: 048
     Dates: start: 20050909, end: 20050910

REACTIONS (5)
  - ABDOMINAL PAIN [None]
  - BACK PAIN [None]
  - DIZZINESS [None]
  - NAUSEA [None]
  - VOMITING [None]
